FAERS Safety Report 12425558 (Version 4)
Quarter: 2017Q2

REPORT INFORMATION
  Report Type: Report from Study
  Country: DE (occurrence: DE)
  Receive Date: 20160601
  Receipt Date: 20170414
  Transmission Date: 20170830
  Serious: Yes (Death, Life-Threatening, Hospitalization, Other)
  Sender: FDA-Public Use
  Company Number: PHHY2016DE057790

PATIENT
  Age: 78 Year
  Sex: Female
  Weight: 64 kg

DRUGS (22)
  1. METOCLOPRAMIDE. [Concomitant]
     Active Substance: METOCLOPRAMIDE
     Indication: PREMEDICATION
     Dosage: 2X20 MG, QD(14 TIMES A WEEK EVERY 4 WEEKS)
     Route: 065
     Dates: start: 201503
  2. TRAMAL [Concomitant]
     Active Substance: TRAMADOL
     Indication: PRODUCT USED FOR UNKNOWN INDICATION
     Dosage: 200 MG, QD (2 INTO 1)
     Route: 065
     Dates: start: 20160819
  3. DESFERAL [Suspect]
     Active Substance: DEFEROXAMINE MESYLATE
     Dosage: UNK
     Route: 042
     Dates: start: 20160820, end: 20161103
  4. DESFERAL [Suspect]
     Active Substance: DEFEROXAMINE MESYLATE
     Dosage: 2000 MG, UNK
     Route: 042
     Dates: start: 20160506
  5. DESFERAL [Suspect]
     Active Substance: DEFEROXAMINE MESYLATE
     Dosage: 2000 MG, UNK
     Route: 042
     Dates: start: 20160525
  6. VIDAZA [Concomitant]
     Active Substance: AZACITIDINE
     Indication: MYELODYSPLASTIC SYNDROME
     Dosage: 127 MG, QD (7 TIMES A WEEK, EVERY 4 WEEKS)
     Route: 042
     Dates: start: 201503, end: 20160802
  7. CELLONDAN [Concomitant]
     Indication: PREMEDICATION
     Dosage: 4 MG, QD (7 TIMES A WEEK EVERY 4 WEEKS)
     Route: 065
     Dates: start: 201503
  8. EXEMESTAN [Concomitant]
     Active Substance: EXEMESTANE
     Indication: BREAST CANCER
     Dosage: 25 MG, (1X1) QD
     Route: 065
     Dates: start: 201509
  9. ESTRIOL [Concomitant]
     Active Substance: ESTRIOL
     Indication: PRODUCT USED FOR UNKNOWN INDICATION
     Dosage: 1 DF, QD
     Route: 065
     Dates: start: 20160819
  10. DESFERAL [Suspect]
     Active Substance: DEFEROXAMINE MESYLATE
     Indication: MYELODYSPLASTIC SYNDROME
     Dosage: 250 ML, QD (31.0 MG PER KG BODY WEIGHT PER DAY)
     Route: 042
     Dates: start: 20160309, end: 20160819
  11. DESFERAL [Suspect]
     Active Substance: DEFEROXAMINE MESYLATE
     Dosage: 2000 MG, UNK
     Route: 042
     Dates: start: 20160413
  12. VIDAZA [Concomitant]
     Active Substance: AZACITIDINE
     Dosage: 118 MG, QD (7 TIMES A WEEK, EVERY 4 WEEKS)
     Route: 042
     Dates: start: 20161206
  13. RAMIPRIL COMP [Concomitant]
     Active Substance: HYDROCHLOROTHIAZIDE\RAMIPRIL
     Indication: AORTIC STENOSIS
     Dosage: 1 DF, QD (2.5/12.5)1X1/2 TABLET
     Route: 065
  14. PROTHAZIN [Concomitant]
     Indication: PRODUCT USED FOR UNKNOWN INDICATION
     Dosage: 20 DRP, QD (1 INTO PER DAY)
     Route: 065
     Dates: start: 20160819
  15. ALLOPURINOL. [Concomitant]
     Active Substance: ALLOPURINOL
     Indication: PRODUCT USED FOR UNKNOWN INDICATION
     Dosage: 300 MG, QD (1 INTO 1)
     Route: 065
  16. MOVICOL [Concomitant]
     Active Substance: POLYETHYLENE GLYCOL 3350\POTASSIUM CHLORIDE\SODIUM BICARBONATE\SODIUM CHLORIDE
     Indication: PRODUCT USED FOR UNKNOWN INDICATION
     Dosage: 1 DF, QD (1 SACCH)
     Route: 065
     Dates: start: 20160819
  17. DESFERAL [Suspect]
     Active Substance: DEFEROXAMINE MESYLATE
     Dosage: 2000 MG, UNK
     Route: 042
     Dates: start: 20160323
  18. DESFERAL [Suspect]
     Active Substance: DEFEROXAMINE MESYLATE
     Dosage: 250 ML, QD (35.7 MG PER KG BODY WEIGHT PER DAY)
     Route: 042
     Dates: start: 20161104
  19. DESFERAL [Suspect]
     Active Substance: DEFEROXAMINE MESYLATE
     Dosage: 31 MG/KG (250 ML), QD
     Route: 042
     Dates: start: 20160309, end: 20160819
  20. BISOPROLOL [Concomitant]
     Active Substance: BISOPROLOL
     Indication: AORTIC STENOSIS
     Dosage: 2.5 MG 1X1QD
     Route: 065
  21. PANTOZOL [Concomitant]
     Active Substance: PANTOPRAZOLE SODIUM
     Indication: PRODUCT USED FOR UNKNOWN INDICATION
     Dosage: 20 MG 1X1 DAILY
     Route: 065
     Dates: start: 201510
  22. REMERGIL [Concomitant]
     Active Substance: MIRTAZAPINE
     Indication: PRODUCT USED FOR UNKNOWN INDICATION
     Dosage: 30 MG, QD (1 INTO 1)
     Route: 065
     Dates: start: 20160819

REACTIONS (15)
  - Thrombocytopenia [Recovered/Resolved]
  - Sepsis [Recovered/Resolved]
  - Thrombocytopenia [Not Recovered/Not Resolved]
  - Leukopenia [Not Recovered/Not Resolved]
  - Pneumonia [Recovered/Resolved]
  - Infection [Recovered/Resolved]
  - Pneumonia [Fatal]
  - Fatigue [Recovering/Resolving]
  - Acute myeloid leukaemia [Not Recovered/Not Resolved]
  - Aspergillus infection [Recovering/Resolving]
  - C-reactive protein increased [Recovered/Resolved]
  - Anaemia [Recovering/Resolving]
  - Neutropenia [Not Recovered/Not Resolved]
  - Humerus fracture [Recovered/Resolved]
  - Mucosal inflammation [Recovered/Resolved]

NARRATIVE: CASE EVENT DATE: 20160318
